FAERS Safety Report 7465658-1 (Version None)
Quarter: 2011Q2

REPORT INFORMATION
  Report Type: 
  Country: None (occurrence: None)
  Receive Date: 20110509
  Receipt Date: 20110429
  Transmission Date: 20111010
  Serious: Yes (Other)
  Sender: FDA-Public Use
  Company Number: A0925093A

PATIENT
  Age: 83 Year
  Sex: Female

DRUGS (6)
  1. VIT E [Concomitant]
  2. AMIODARONE [Concomitant]
  3. COREG CR [Suspect]
     Route: 048
  4. HEART MEDICATION [Concomitant]
  5. LASIX [Concomitant]
  6. DIGOXIN [Concomitant]

REACTIONS (4)
  - GASTROENTERITIS VIRAL [None]
  - NAUSEA [None]
  - DIARRHOEA [None]
  - VOMITING [None]
